FAERS Safety Report 8961286 (Version 1)
Quarter: 2012Q4

REPORT INFORMATION
  Report Type: 
  Country: DK (occurrence: DK)
  Receive Date: 20121213
  Receipt Date: 20121213
  Transmission Date: 20130627
  Serious: Yes (Hospitalization, Other)
  Sender: FDA-Public Use
  Company Number: DK-JNJFOC-2008045986

PATIENT
  Age: 51 Year
  Sex: Female

DRUGS (5)
  1. IBUPROFEN [Suspect]
     Indication: PRODUCT USED FOR UNKNOWN INDICATION
     Dosage: Daily Dose Qty: 500 mg
  2. INTERFERON BETA [Suspect]
     Indication: RELAPSING-REMITTING MULTIPLE SCLEROSIS
     Dosage: Daily Dose Qty: 30 ug
     Dates: start: 200606
  3. SIMVASTATIN [Suspect]
     Indication: LIPIDS INCREASED
  4. LORAZEPAM [Suspect]
     Indication: PRODUCT USED FOR UNKNOWN INDICATION
  5. SERTRALINE [Suspect]
     Indication: PRODUCT USED FOR UNKNOWN INDICATION

REACTIONS (4)
  - Acute hepatic failure [Unknown]
  - Hepatic encephalopathy [Unknown]
  - Coma hepatic [Unknown]
  - Autoimmune hepatitis [Unknown]
